FAERS Safety Report 15814799 (Version 1)
Quarter: 2019Q1

REPORT INFORMATION
  Report Type: Spontaneous
  Country: IT (occurrence: IT)
  Receive Date: 20190111
  Receipt Date: 20190111
  Transmission Date: 20190417
  Serious: Yes (Hospitalization)
  Sender: FDA-Public Use
  Company Number: IT-MYLANLABS-2019M1002012

PATIENT
  Age: 53 Year
  Sex: Female

DRUGS (4)
  1. BRUFEN [Suspect]
     Active Substance: IBUPROFEN
     Indication: PAIN
     Dosage: 6 GRAM, ONCE
     Route: 048
     Dates: start: 20180501, end: 20180501
  2. DELTACORTENE [Concomitant]
     Active Substance: PREDNISONE
     Indication: PEMPHIGOID
     Dosage: 2.5 MILLIGRAM, QD
     Route: 048
     Dates: start: 20170101
  3. CONTRAMAL [Suspect]
     Active Substance: TRAMADOL HYDROCHLORIDE
     Indication: PAIN
     Dosage: 20 DOSAGE FORM, ONCE
     Route: 048
     Dates: start: 20180501, end: 20180501
  4. DAPSONE. [Concomitant]
     Active Substance: DAPSONE
     Indication: PEMPHIGOID
     Dosage: 75 MILLIGRAM, QD
     Route: 048
     Dates: start: 20170101

REACTIONS (4)
  - Miosis [Recovered/Resolved]
  - Intentional overdose [Recovered/Resolved]
  - Respiratory depression [Recovered/Resolved]
  - Bradyphrenia [Recovered/Resolved]

NARRATIVE: CASE EVENT DATE: 20180501
